FAERS Safety Report 12856806 (Version 3)
Quarter: 2018Q1

REPORT INFORMATION
  Report Type: Spontaneous
  Country: PR (occurrence: PR)
  Receive Date: 20161018
  Receipt Date: 20180110
  Transmission Date: 20180508
  Serious: No
  Sender: FDA-Public Use
  Company Number: PR-PFIZER INC-2016484191

PATIENT
  Age: 10 Year
  Sex: Female
  Weight: 52.16 kg

DRUGS (8)
  1. GENOTROPIN [Suspect]
     Active Substance: SOMATROPIN
     Indication: GROWTH FAILURE
     Dosage: 2.6 MG, 1X/DAY
     Dates: start: 201609
  2. VITAMIN D [Concomitant]
     Active Substance: CHOLECALCIFEROL
     Indication: HEREDITARY HYPOPHOSPHATAEMIC RICKETS
     Dosage: 2000 IU, 1X/DAY
  3. VITAMIN D [Concomitant]
     Active Substance: CHOLECALCIFEROL
     Indication: VITAMIN D DECREASED
  4. CEFADROXIL. [Concomitant]
     Active Substance: CEFADROXIL
     Indication: HANGNAIL
     Dosage: 1 DF, 2X/DAY EVERY 12 HOURS
     Dates: start: 201610
  5. PHOSPHATE [Concomitant]
     Active Substance: UNSPECIFIED INGREDIENT
     Indication: BLOOD PHOSPHORUS DECREASED
     Dosage: 200 MG, UNK
  6. GENOTROPIN [Suspect]
     Active Substance: SOMATROPIN
     Indication: BODY HEIGHT BELOW NORMAL
     Dosage: 3 MG, 1X/DAY (THIGHS, BELLY OR LOWER BACK NEAR BUTTOCKS)
  7. NAPROXEN. [Concomitant]
     Active Substance: NAPROXEN
     Indication: HANGNAIL
     Dosage: 1 DF, 2X/DAY EVERY 12 HOURS
     Dates: start: 201610
  8. CALCITROL [Concomitant]
     Active Substance: CALCITRIOL
     Indication: VITAMIN D DEFICIENCY
     Dosage: UNK

REACTIONS (1)
  - Arthralgia [Recovered/Resolved]

NARRATIVE: CASE EVENT DATE: 20161004
